FAERS Safety Report 6057800-4 (Version None)
Quarter: 2009Q1

REPORT INFORMATION
  Report Type: 
  Country: None (occurrence: None)
  Receive Date: 20090129
  Receipt Date: 20090127
  Transmission Date: 20090719
  Serious: Yes (Death, Hospitalization)
  Sender: FDA-Public Use
  Company Number: PHHY2008JP31793

PATIENT
  Age: 72 Year
  Sex: Male

DRUGS (5)
  1. NEORAL [Suspect]
     Indication: IDIOPATHIC THROMBOCYTOPENIC PURPURA
     Dosage: 50 MG/DAY
     Route: 048
     Dates: start: 20080714, end: 20080815
  2. PREDNISOLONE [Suspect]
     Indication: AUTOIMMUNE HEPATITIS
     Dosage: 50 MG/DAY
     Route: 048
     Dates: start: 20080601
  3. PREDNISOLONE [Suspect]
     Indication: SYSTEMIC LUPUS ERYTHEMATOSUS
     Dosage: 30 M/DAY
     Dates: start: 20080715
  4. PREDNISOLONE [Suspect]
     Dosage: 25 MG/DAY
     Dates: start: 20080719
  5. PREDNISOLONE [Suspect]
     Dosage: 22.5 MG/DAY
     Dates: start: 20080809

REACTIONS (6)
  - ASPERGILLOSIS [None]
  - C-REACTIVE PROTEIN INCREASED [None]
  - ENDOTRACHEAL INTUBATION [None]
  - FUNGAL DNA TEST POSITIVE [None]
  - PNEUMOCYSTIS JIROVECI PNEUMONIA [None]
  - WHITE BLOOD CELL COUNT INCREASED [None]
